FAERS Safety Report 4650887-2 (Version None)
Quarter: 2005Q2

REPORT INFORMATION
  Report Type: 
  Country: None (occurrence: None)
  Receive Date: 20050429
  Receipt Date: 20050429
  Transmission Date: 20051028
  Serious: Yes (Hospitalization, Other)
  Sender: FDA-Public Use
  Company Number: None

PATIENT
  Age: 33 Year
  Sex: Male
  Weight: 108.8633 kg

DRUGS (4)
  1. CETUXIMAB: 400MG/M2 W/1; 250 MG/M2; BRISTOL MYERS SQU [Suspect]
     Indication: HEPATIC NEOPLASM MALIGNANT
     Dosage: 670 MG/M2  IV
     Route: 042
     Dates: start: 20050411
  2. CETUXIMAB: 400MG/M2 W/1; 250 MG/M2; BRISTOL MYERS SQU [Suspect]
     Indication: HEPATIC NEOPLASM MALIGNANT
     Dosage: 670 MG/M2  IV
     Route: 042
     Dates: start: 20050418
  3. OXYCODONE HCL [Concomitant]
  4. PERCOCET [Concomitant]

REACTIONS (2)
  - HAEMATOCRIT DECREASED [None]
  - PERITONEAL HAEMORRHAGE [None]
